FAERS Safety Report 19844523 (Version 3)
Quarter: 2021Q3

REPORT INFORMATION
  Report Type: Spontaneous
  Country: NL (occurrence: NL)
  Receive Date: 20210917
  Receipt Date: 20210929
  Transmission Date: 20211014
  Serious: Yes (Other)
  Sender: FDA-Public Use
  Company Number: NL-APOTEX-2021AP042678

PATIENT
  Age: 30 Year
  Sex: Male

DRUGS (4)
  1. PAROXETINE HYDROCHLORIDE. [Suspect]
     Active Substance: PAROXETINE HYDROCHLORIDE
     Dosage: 9.6 MILLIGRAM
     Route: 065
  2. PAROXETINE HYDROCHLORIDE. [Suspect]
     Active Substance: PAROXETINE HYDROCHLORIDE
     Indication: STRESS AT WORK
     Dosage: 10 MILLIGRAM
     Route: 065
     Dates: start: 2020, end: 202012
  3. PAROXETINE HYDROCHLORIDE. [Suspect]
     Active Substance: PAROXETINE HYDROCHLORIDE
     Dosage: 9.4 MILLIGRAM
     Route: 065
  4. PAROXETINE HYDROCHLORIDE. [Suspect]
     Active Substance: PAROXETINE HYDROCHLORIDE
     Dosage: 9.8 MILLIGRAM
     Route: 065

REACTIONS (18)
  - Derealisation [Unknown]
  - Neuralgia [Not Recovered/Not Resolved]
  - Burning sensation [Not Recovered/Not Resolved]
  - Limb discomfort [Unknown]
  - Skin burning sensation [Unknown]
  - Muscle contractions involuntary [Not Recovered/Not Resolved]
  - Myalgia [Not Recovered/Not Resolved]
  - Bedridden [Not Recovered/Not Resolved]
  - Depression [Unknown]
  - Suicidal ideation [Not Recovered/Not Resolved]
  - Muscle spasms [Unknown]
  - Condition aggravated [Not Recovered/Not Resolved]
  - Pain [Unknown]
  - Paraesthesia [Recovering/Resolving]
  - Disability [Unknown]
  - Musculoskeletal stiffness [Unknown]
  - Electric shock sensation [Unknown]
  - Walking disability [Not Recovered/Not Resolved]
